FAERS Safety Report 9590762 (Version 1)
Quarter: 2013Q4

REPORT INFORMATION
  Report Type: Spontaneous
  Country: US (occurrence: US)
  Receive Date: 20131003
  Receipt Date: 20131003
  Transmission Date: 20140711
  Serious: No
  Sender: FDA-Public Use
  Company Number: US-AMGEN-USASP2012075925

PATIENT
  Age: 74 Year
  Sex: Female
  Weight: 44.44 kg

DRUGS (15)
  1. ENBREL [Suspect]
     Indication: RHEUMATOID ARTHRITIS
     Dosage: 50 MG, QWK
     Route: 058
     Dates: end: 201210
  2. CELLCEPT                           /01275102/ [Concomitant]
     Dosage: 250 MG, UNK
  3. COZAAR [Concomitant]
     Dosage: 25 MG, UNK
  4. PANTOPRAZOLE [Concomitant]
     Dosage: 20 MG, UNK
  5. DETROL [Concomitant]
     Dosage: 1 MG, UNK
  6. PREDNISONE [Concomitant]
     Dosage: 5 MG, UNK
  7. NEURONTIN [Concomitant]
     Dosage: 100 MG, UNK
  8. HYDROXYCHLOROQUINE [Concomitant]
     Dosage: 200 MG, UNK
  9. METOPROLOL [Concomitant]
     Dosage: 25 MG, UNK
  10. LOSARTAN POTASSIUM [Concomitant]
     Dosage: 100 MG, UNK
  11. HYDROCODONE W/APAP                 /00607101/ [Concomitant]
     Dosage: 10-300 MG
  12. ASPIRIN [Concomitant]
     Dosage: 81 MG, UNK
  13. ZETIA [Concomitant]
     Dosage: 10 MG, UNK
  14. TYLENOL                            /00020001/ [Concomitant]
     Dosage: 500 MG, UNK
  15. ARANESP [Concomitant]
     Dosage: 100 MUG, UNK

REACTIONS (2)
  - Herpes zoster [Unknown]
  - Weight decreased [Unknown]
